FAERS Safety Report 24030493 (Version 1)
Quarter: 2024Q2

REPORT INFORMATION
  Report Type: Spontaneous
  Country: US (occurrence: None)
  Receive Date: 20240628
  Receipt Date: 20240628
  Transmission Date: 20240716
  Serious: Yes (Life-Threatening, Other)
  Sender: FDA-Public Use
  Company Number: 2024A147664

PATIENT
  Age: 34 Year
  Sex: Male

DRUGS (7)
  1. QUETIAPINE [Interacting]
     Active Substance: QUETIAPINE
     Indication: Bipolar disorder
     Route: 048
  2. QUETIAPINE [Interacting]
     Active Substance: QUETIAPINE
     Indication: Bipolar disorder
     Route: 048
  3. BENZTROPINE [Interacting]
     Active Substance: BENZTROPINE
     Indication: Extrapyramidal disorder
  4. BENZTROPINE [Interacting]
     Active Substance: BENZTROPINE
     Indication: Extrapyramidal disorder
  5. CLOZAPINE [Interacting]
     Active Substance: CLOZAPINE
     Indication: Bipolar disorder
     Dosage: TITRATED OVER 3MONTHS FROM 100 TO 450 MG DAILY
  6. CLOZAPINE [Interacting]
     Active Substance: CLOZAPINE
     Indication: Bipolar disorder
  7. CLOZAPINE [Interacting]
     Active Substance: CLOZAPINE
     Indication: Bipolar disorder

REACTIONS (3)
  - Gastrointestinal hypomotility [Unknown]
  - Drug interaction [Unknown]
  - Diarrhoea [Unknown]
